FAERS Safety Report 20731820 (Version 2)
Quarter: 2022Q2

REPORT INFORMATION
  Report Type: Report from Study
  Country: DE (occurrence: DE)
  Receive Date: 20220420
  Receipt Date: 20220426
  Transmission Date: 20220721
  Serious: Yes (Hospitalization)
  Sender: FDA-Public Use
  Company Number: DE-JNJFOC-20220413123

PATIENT
  Age: 71 Year
  Sex: Female
  Weight: 88 kg

DRUGS (10)
  1. AMIVANTAMAB [Suspect]
     Active Substance: AMIVANTAMAB
     Indication: Non-small cell lung cancer metastatic
     Route: 042
     Dates: start: 20211130, end: 20220323
  2. LEVOTHYROXINE [Concomitant]
     Active Substance: LEVOTHYROXINE
     Indication: Hypothyroidism
     Route: 048
     Dates: start: 20140101
  3. ESTRIOL [Concomitant]
     Active Substance: ESTRIOL
     Indication: Hysterectomy
     Route: 050
     Dates: start: 20150101
  4. MAGNESIUM [Concomitant]
     Active Substance: MAGNESIUM
     Indication: Muscle spasms
     Route: 048
     Dates: start: 20211014
  5. PANTHENOL [Concomitant]
     Active Substance: PANTHENOL
     Indication: Rash
     Route: 045
     Dates: start: 20220202
  6. TYROSUR [Concomitant]
     Indication: Rash
     Route: 062
     Dates: start: 20220202
  7. URGOTUL [Concomitant]
     Indication: Rash
     Route: 062
     Dates: start: 20220202
  8. ACETAMINOPHEN [Concomitant]
     Active Substance: ACETAMINOPHEN
     Indication: Infusion related reaction
     Route: 042
     Dates: start: 20220323, end: 20220323
  9. PREDNISOLONE [Concomitant]
     Active Substance: PREDNISOLONE
     Indication: Infusion related reaction
     Route: 042
     Dates: start: 20220323, end: 20220323
  10. DIMETHINDENE [Concomitant]
     Active Substance: DIMETHINDENE
     Indication: Infusion related reaction
     Route: 042
     Dates: start: 20220323, end: 20220323

REACTIONS (2)
  - COVID-19 [Not Recovered/Not Resolved]
  - General physical health deterioration [Recovered/Resolved]

NARRATIVE: CASE EVENT DATE: 20220324
